FAERS Safety Report 9314656 (Version 3)
Quarter: 2013Q2

REPORT INFORMATION
  Report Type: Spontaneous
  Country: US (occurrence: US)
  Receive Date: 20130529
  Receipt Date: 20130629
  Transmission Date: 20140414
  Serious: Yes (Other)
  Sender: FDA-Public Use
  Company Number: US-ROCHE-1229590

PATIENT
  Age: 78 Year
  Sex: Female
  Weight: 45.4 kg

DRUGS (11)
  1. AVASTIN [Suspect]
     Indication: COLON CANCER METASTATIC
     Route: 042
     Dates: start: 20120912, end: 20130415
  2. OXALIPLATIN [Suspect]
     Indication: COLON CANCER METASTATIC
     Route: 065
     Dates: start: 20120912, end: 20130325
  3. FLU VACCINE [Concomitant]
     Route: 065
     Dates: start: 20121210, end: 20121210
  4. DURAGESIC PATCH [Concomitant]
     Route: 062
     Dates: start: 20130107
  5. DURAGESIC PATCH [Concomitant]
     Route: 062
     Dates: start: 20130429
  6. LEVOTHYROXINE [Concomitant]
     Route: 065
     Dates: start: 20120831
  7. VICODIN [Concomitant]
     Route: 065
     Dates: start: 20130610
  8. LISINOPRIL [Concomitant]
     Route: 048
     Dates: start: 20120831
  9. 5-FU [Concomitant]
     Route: 040
     Dates: start: 20120912
  10. 5-FU [Concomitant]
     Dosage: CONTINUOUS INFUSION
     Route: 042
     Dates: end: 20130325
  11. LEUCOVORIN [Concomitant]
     Route: 065
     Dates: start: 20120912, end: 20130325

REACTIONS (8)
  - Visual impairment [Unknown]
  - Balance disorder [Unknown]
  - Pain in extremity [Not Recovered/Not Resolved]
  - Blood pressure increased [Unknown]
  - Neuropathy peripheral [Unknown]
  - Pain in jaw [Unknown]
  - Headache [Recovered/Resolved]
  - Decreased appetite [Unknown]
